FAERS Safety Report 10571235 (Version 3)
Quarter: 2015Q1

REPORT INFORMATION
  Report Type: Spontaneous
  Country: JP (occurrence: JP)
  Receive Date: 20141107
  Receipt Date: 20150305
  Transmission Date: 20150720
  Serious: Yes (Hospitalization, Disabling)
  Sender: FDA-Public Use
  Company Number: JP-AMGEN-JPNSP2014085672

PATIENT
  Age: 48 Year
  Sex: Female
  Weight: 46 kg

DRUGS (17)
  1. NOLVADEX-20 [Concomitant]
     Dosage: 20 MG, QD IMMEDIATELY AFTER THE MORNING
     Route: 065
     Dates: start: 20140728
  2. TS-1 [Concomitant]
     Active Substance: GIMERACIL\OTERACIL\TEGAFUR
     Indication: METASTASES TO BONE
     Dosage: 100 MG, BID QOD
     Route: 048
     Dates: start: 201210, end: 201407
  3. FENTANYL CITRATE. [Concomitant]
     Active Substance: FENTANYL CITRATE
     Dosage: 8 MG, QD
     Route: 065
     Dates: start: 20140521
  4. FERROMIA                           /00023520/ [Concomitant]
     Dosage: 50 MG, BID, IMMEDIATELY AFTER THE MORNING AND DINNER
     Route: 065
     Dates: start: 20131204
  5. LYRICA [Concomitant]
     Active Substance: PREGABALIN
     Dosage: 150 MG, QD
     Route: 065
     Dates: start: 20131204
  6. MOHRUS [Concomitant]
     Active Substance: KETOPROFEN
     Dosage: 40 MG, QD
     Route: 050
     Dates: start: 20131204
  7. TAMOXIFEN                          /00388702/ [Concomitant]
     Dosage: UNK
     Route: 065
  8. TS-1 [Concomitant]
     Active Substance: GIMERACIL\OTERACIL\TEGAFUR
     Indication: BREAST CANCER
  9. RANMARK [Suspect]
     Active Substance: DENOSUMAB
     Indication: BREAST CANCER
     Dosage: 120 MG, Q4WK
     Route: 058
     Dates: start: 20140404, end: 20140922
  10. RANMARK [Suspect]
     Active Substance: DENOSUMAB
     Indication: METASTASES TO BONE
  11. RANMARK [Suspect]
     Active Substance: DENOSUMAB
     Indication: BONE LESION
  12. MAGMITT [Concomitant]
     Active Substance: MAGNESIUM OXIDE
     Dosage: 330 MG, TID, IMMEDIATELY AFTER EACH MEAL
     Route: 065
     Dates: start: 20131204
  13. GASTER [Concomitant]
     Active Substance: FAMOTIDINE
     Dosage: 20 MG, BID, IMMEDIATELY AFTER THE MORNING AND DINNER
     Route: 065
     Dates: start: 20131204
  14. TRAMAL [Concomitant]
     Active Substance: TRAMADOL
     Dosage: 25 MG, QID
     Route: 065
     Dates: start: 20131204
  15. PRIMPERAN [Concomitant]
     Active Substance: METOCLOPRAMIDE HYDROCHLORIDE
     Dosage: 5 MG, TID, IMMEDIATELY AFTER EACH MEAL
     Route: 065
     Dates: start: 20131204
  16. ZOMETA [Suspect]
     Active Substance: ZOLEDRONIC ACID
     Indication: PRODUCT USED FOR UNKNOWN INDICATION
     Dosage: UNK
     Route: 065
  17. OXINORM                            /00045603/ [Concomitant]
     Dosage: UNK, AS NEEDED
     Route: 065
     Dates: start: 20140421

REACTIONS (1)
  - Osteonecrosis of jaw [Recovering/Resolving]

NARRATIVE: CASE EVENT DATE: 20141017
